FAERS Safety Report 5629132-7 (Version None)
Quarter: 2008Q1

REPORT INFORMATION
  Report Type: 
  Country: None (occurrence: None)
  Receive Date: 20080216
  Receipt Date: 20080123
  Transmission Date: 20080703
  Serious: No
  Sender: FDA-Public Use
  Company Number: US-BAXTER-2008BH000670

PATIENT
  Sex: Male
  Weight: 113 kg

DRUGS (2)
  1. HEPARIN SODIUM [Suspect]
     Indication: PROPHYLAXIS
     Route: 033
     Dates: start: 20071001, end: 20080101
  2. ROCALTROL [Suspect]
     Indication: HYPERPARATHYROIDISM
     Route: 048
     Dates: start: 20080101, end: 20080101

REACTIONS (1)
  - VISION BLURRED [None]
